FAERS Safety Report 7532558-8 (Version None)
Quarter: 2011Q2

REPORT INFORMATION
  Report Type: 
  Country: None (occurrence: None)
  Receive Date: 20110608
  Receipt Date: 20110527
  Transmission Date: 20111010
  Serious: No
  Sender: FDA-Public Use
  Company Number: PHHY2011JP47750

PATIENT
  Age: 67 Year
  Sex: Female

DRUGS (4)
  1. BONALON [Concomitant]
     Dosage: 5 MG, UNK
     Route: 048
     Dates: start: 20081001
  2. LAMISIL [Suspect]
     Dosage: 125 MG, UNK
     Route: 048
  3. LAMISIL [Suspect]
     Dosage: 125 MG, BID
     Route: 048
     Dates: start: 20110101
  4. LOXONIN [Concomitant]
     Dosage: 180 MG, UNK
     Route: 048
     Dates: start: 20081001

REACTIONS (1)
  - INCORRECT DOSE ADMINISTERED [None]
